FAERS Safety Report 7789271-1 (Version None)
Quarter: 2011Q3

REPORT INFORMATION
  Report Type: 
  Country: None (occurrence: None)
  Receive Date: 20110930
  Receipt Date: 20110512
  Transmission Date: 20111222
  Serious: Yes (Death, Other)
  Sender: FDA-Public Use
  Company Number: GR-GLAXOSMITHKLINE-B0719986A

PATIENT
  Age: 64 Year
  Sex: Male

DRUGS (4)
  1. ARZERRA [Suspect]
     Indication: MANTLE CELL LYMPHOMA
     Dosage: 300MG PER DAY
     Route: 042
     Dates: start: 20110508
  2. BORTEZOMIB [Concomitant]
     Route: 042
  3. DEXAMETHASONE [Concomitant]
  4. TREANDA [Concomitant]

REACTIONS (2)
  - OFF LABEL USE [None]
  - DISEASE PROGRESSION [None]
